FAERS Safety Report 16600412 (Version 1)
Quarter: 2019Q3

REPORT INFORMATION
  Report Type: Spontaneous
  Country: FR (occurrence: FR)
  Receive Date: 20190719
  Receipt Date: 20190719
  Transmission Date: 20191004
  Serious: Yes (Other)
  Sender: FDA-Public Use
  Company Number: FR-TEVA-2019-FR-1079714

PATIENT
  Age: 19 Year
  Sex: Male

DRUGS (5)
  1. SIRTURO [Suspect]
     Active Substance: BEDAQUILINE FUMARATE
     Indication: LYMPH NODE TUBERCULOSIS
     Dosage: 6DOSAGE FORMS PER WEEKS
     Route: 048
     Dates: start: 201812
  2. MOXIFLOXACINE BASE [Suspect]
     Active Substance: MOXIFLOXACIN
     Indication: LYMPH NODE TUBERCULOSIS
     Dosage: 400MG PER DAY
     Route: 048
     Dates: start: 201812
  3. LAMPRENE [Suspect]
     Active Substance: CLOFAZIMINE
     Indication: LYMPH NODE TUBERCULOSIS
     Dosage: 1DOSAGE FORM PER DAY
     Route: 048
     Dates: start: 201812
  4. PIRILENE 500 MG, COMPRIM? [Suspect]
     Active Substance: PYRAZINAMIDE
     Indication: LYMPH NODE TUBERCULOSIS
     Dosage: 3DOSAGE FORMS PER DAY
     Route: 048
     Dates: start: 201812
  5. LINEZOLIDE [Suspect]
     Active Substance: LINEZOLID
     Indication: LYMPH NODE TUBERCULOSIS
     Dosage: 600MG PER DAY
     Route: 048
     Dates: start: 201812

REACTIONS (1)
  - Iridocyclitis [Not Recovered/Not Resolved]

NARRATIVE: CASE EVENT DATE: 20190514
